FAERS Safety Report 24459758 (Version 1)
Quarter: 2024Q4

REPORT INFORMATION
  Report Type: Spontaneous
  Country: CN (occurrence: CN)
  Receive Date: 20241018
  Receipt Date: 20241018
  Transmission Date: 20250114
  Serious: No
  Sender: ROCHE
  Company Number: CN-ROCHE-3533164

PATIENT
  Age: 10 Year
  Sex: Male
  Weight: 45.0 kg

DRUGS (1)
  1. MABTHERA [Suspect]
     Active Substance: RITUXIMAB
     Indication: Nephrotic syndrome
     Dosage: PUMP INJECTION
     Route: 042
     Dates: start: 20240321, end: 20240321

REACTIONS (3)
  - Rash [Recovered/Resolved]
  - Throat irritation [Recovering/Resolving]
  - Off label use [Unknown]

NARRATIVE: CASE EVENT DATE: 20240321
